FAERS Safety Report 5987043-1 (Version None)
Quarter: 2008Q4

REPORT INFORMATION
  Report Type: 
  Country: None (occurrence: None)
  Receive Date: 20081209
  Receipt Date: 20081201
  Transmission Date: 20090506
  Serious: Yes (Hospitalization)
  Sender: FDA-Public Use
  Company Number: D0058970A

PATIENT
  Age: 28 Year
  Sex: Male
  Weight: 67 kg

DRUGS (5)
  1. AUGMENTIN '125' [Suspect]
     Indication: URINARY TRACT INFECTION
     Dosage: 2.2G THREE TIMES PER DAY
     Route: 042
     Dates: start: 20081005, end: 20081008
  2. REMICADE [Suspect]
     Route: 042
     Dates: end: 20080901
  3. PANTOPRAZOL [Concomitant]
     Dosage: 40MG TWICE PER DAY
     Route: 042
     Dates: end: 20081010
  4. PREDNISOLONE [Concomitant]
     Dosage: 10MG PER DAY
     Route: 048
     Dates: end: 20081013
  5. LORAZEPAM [Concomitant]
     Dosage: .5MG FOUR TIMES PER DAY
     Route: 048
     Dates: end: 20081006

REACTIONS (10)
  - ANOREXIA [None]
  - BLOOD ALKALINE PHOSPHATASE INCREASED [None]
  - BLOOD BILIRUBIN INCREASED [None]
  - CHOLANGITIS SCLEROSING [None]
  - GAMMA-GLUTAMYLTRANSFERASE INCREASED [None]
  - HEPATIC ENZYME INCREASED [None]
  - HEPATOTOXICITY [None]
  - JAUNDICE [None]
  - NAUSEA [None]
  - PYREXIA [None]
